FAERS Safety Report 12500603 (Version 8)
Quarter: 2017Q1

REPORT INFORMATION
  Report Type: Spontaneous
  Country: US (occurrence: US)
  Receive Date: 20160627
  Receipt Date: 20170313
  Transmission Date: 20170428
  Serious: Yes (Life-Threatening, Congenital Anomaly, Other)
  Sender: FDA-Public Use
  Company Number: PHEH2016US015548

PATIENT
  Sex: Male

DRUGS (4)
  1. ONDANSETRON TEVA//ONDANSETRON [Suspect]
     Active Substance: ONDANSETRON
     Indication: FOETAL EXPOSURE DURING PREGNANCY
     Dosage: MOTHER DOSE: 04 MG PRN
     Route: 064
  2. ONDANSETRON [Suspect]
     Active Substance: ONDANSETRON
     Indication: FOETAL EXPOSURE DURING PREGNANCY
     Dosage: MOTHER DOSE: 04 MG PRN
     Route: 064
  3. ZOFRAN [Suspect]
     Active Substance: ONDANSETRON HYDROCHLORIDE
     Indication: FOETAL EXPOSURE DURING PREGNANCY
     Dosage: MOTHER DOSE: 08 MG, Q8H
     Route: 064
  4. ZOFRAN ODT [Suspect]
     Active Substance: ONDANSETRON HYDROCHLORIDE
     Indication: FOETAL EXPOSURE DURING PREGNANCY
     Route: 064

REACTIONS (29)
  - Cyanosis [Unknown]
  - Anhedonia [Unknown]
  - Apnoea [Unknown]
  - Partial seizures [Unknown]
  - Wheezing [Unknown]
  - Gastrooesophageal reflux disease [Unknown]
  - Gastroenteritis [Unknown]
  - Dyspnoea [Unknown]
  - Congenital anomaly [Unknown]
  - Heart disease congenital [Unknown]
  - Atrial septal defect [Unknown]
  - Apparent life threatening event [Unknown]
  - Convulsion neonatal [Unknown]
  - Pain [Unknown]
  - Fungal skin infection [Unknown]
  - Rhinovirus infection [Unknown]
  - Upper respiratory tract infection [Unknown]
  - Multiple congenital abnormalities [Unknown]
  - Foetal exposure during pregnancy [Unknown]
  - Left-to-right cardiac shunt [Unknown]
  - Heart rate irregular [Unknown]
  - Myoclonus [Unknown]
  - Emotional distress [Unknown]
  - Anxiety [Unknown]
  - Injury [Unknown]
  - Cough [Unknown]
  - Staring [Unknown]
  - Febrile convulsion [Unknown]
  - Rhinorrhoea [Unknown]
